FAERS Safety Report 6239802-8 (Version None)
Quarter: 2009Q2

REPORT INFORMATION
  Report Type: 
  Country: None (occurrence: None)
  Receive Date: 20090618
  Receipt Date: 20090618
  Transmission Date: 20091009
  Serious: No
  Sender: FDA-Public Use
  Company Number: None

PATIENT
  Age: 57 Year
  Sex: Male
  Weight: 89.8122 kg

DRUGS (2)
  1. ZICAM NASAL GEL [Suspect]
     Indication: NASOPHARYNGITIS
     Dosage: AS PRESCRIBED ON CONTAINER ENDOSINUSIAL
     Route: 006
     Dates: start: 20071206, end: 20071206
  2. ZICAM NASAL GEL [Suspect]
     Indication: SINUS DISORDER
     Dosage: AS PRESCRIBED ON CONTAINER ENDOSINUSIAL
     Route: 006
     Dates: start: 20071206, end: 20071206

REACTIONS (5)
  - BURNING SENSATION [None]
  - DYSGEUSIA [None]
  - HYPOSMIA [None]
  - PAROSMIA [None]
  - SINUS DISORDER [None]
